FAERS Safety Report 7478985-9 (Version None)
Quarter: 2011Q2

REPORT INFORMATION
  Report Type: 
  Country: None (occurrence: None)
  Receive Date: 20110513
  Receipt Date: 20110502
  Transmission Date: 20111010
  Serious: Yes (Hospitalization)
  Sender: FDA-Public Use
  Company Number: PHHY2011US37637

PATIENT
  Sex: Male

DRUGS (1)
  1. MYFORTIC [Suspect]
     Indication: COMPLICATIONS OF TRANSPLANTED KIDNEY
     Dosage: 360 MG, BID
     Route: 048
     Dates: start: 20101206

REACTIONS (3)
  - URINARY TRACT INFECTION [None]
  - ATRIAL FIBRILLATION [None]
  - ARTERIAL DISORDER [None]
